FAERS Safety Report 7812858-4 (Version None)
Quarter: 2011Q4

REPORT INFORMATION
  Report Type: 
  Country: None (occurrence: None)
  Receive Date: 20111013
  Receipt Date: 20111007
  Transmission Date: 20120403
  Serious: Yes (Other)
  Sender: FDA-Public Use
  Company Number: US-ABBOTT-11P-163-0862861-00

PATIENT
  Age: 31 Year
  Sex: Male

DRUGS (4)
  1. HUMIRA [Suspect]
     Dates: start: 20090201
  2. VITAMIN TAB [Concomitant]
     Indication: PRODUCT USED FOR UNKNOWN INDICATION
     Dosage: DAILY
  3. HUMIRA [Suspect]
     Indication: ANKYLOSING SPONDYLITIS
     Dates: start: 20050601, end: 20081201
  4. HUMIRA [Suspect]

REACTIONS (8)
  - ARTHRITIS [None]
  - PAIN [None]
  - PLANTAR FASCIITIS [None]
  - EXOSTOSIS [None]
  - PSORIASIS [None]
  - DIARRHOEA [None]
  - DRY SKIN [None]
  - SKIN EXFOLIATION [None]
